FAERS Safety Report 14805276 (Version 4)
Quarter: 2018Q3

REPORT INFORMATION
  Report Type: Spontaneous
  Country: CA (occurrence: CA)
  Receive Date: 20180425
  Receipt Date: 20180928
  Transmission Date: 20181010
  Serious: Yes (Other)
  Sender: FDA-Public Use
  Company Number: CA-CELLTRION INC.-2018CA019340

PATIENT

DRUGS (6)
  1. PREDNISONE. [Concomitant]
     Active Substance: PREDNISONE
     Dosage: UNK
     Route: 065
     Dates: start: 20180413
  2. INFLECTRA [Suspect]
     Active Substance: INFLIXIMAB-DYYB
     Indication: COLITIS ULCERATIVE
     Dosage: 250 MG, CYCLIC  (Q 0, 2, 6 WEEKS, THEN EVERY 8 WEEKS)
     Route: 042
     Dates: start: 20180412
  3. INFLECTRA [Suspect]
     Active Substance: INFLIXIMAB-DYYB
     Dosage: 250 MG, CYCLIC  (Q 0, 2, 6 WEEKS, THEN EVERY 8 WEEKS)
     Route: 042
     Dates: start: 20180426, end: 20180426
  4. INFLECTRA [Suspect]
     Active Substance: INFLIXIMAB-DYYB
     Dosage: 250 MG, CYCLIC, Q (EVERY) 6 WEEKS, THEN EVERY 8 WEEKS)
     Route: 042
     Dates: start: 20180913
  5. INFLECTRA [Suspect]
     Active Substance: INFLIXIMAB-DYYB
     Dosage: 250 MG, CYCLIC, Q (EVERY) 6 WEEKS, THEN EVERY 8 WEEKS)
     Route: 042
     Dates: start: 20180719
  6. INFLECTRA [Suspect]
     Active Substance: INFLIXIMAB-DYYB
     Dosage: 250 MG, CYCLIC, Q (EVERY) 6 WEEKS, THEN EVERY 8 WEEKS)
     Route: 042
     Dates: start: 20180524

REACTIONS (5)
  - Condition aggravated [Recovering/Resolving]
  - Malaise [Unknown]
  - Feeding disorder [Unknown]
  - Contusion [Not Recovered/Not Resolved]
  - Blood pressure fluctuation [Unknown]

NARRATIVE: CASE EVENT DATE: 20180426
